FAERS Safety Report 15567943 (Version 3)
Quarter: 2018Q4

REPORT INFORMATION
  Report Type: Spontaneous
  Country: US (occurrence: US)
  Receive Date: 20181030
  Receipt Date: 20181122
  Transmission Date: 20190205
  Serious: Yes (Disabling)
  Sender: FDA-Public Use
  Company Number: US-BAUSCH-BL-2018-029441

PATIENT
  Age: 65 Year
  Sex: Male

DRUGS (1)
  1. RELISTOR [Suspect]
     Active Substance: METHYLNALTREXONE BROMIDE
     Indication: CONSTIPATION
     Route: 065
     Dates: start: 2015

REACTIONS (5)
  - Bedridden [Not Recovered/Not Resolved]
  - Mobility decreased [Not Recovered/Not Resolved]
  - Underdose [Not Recovered/Not Resolved]
  - Inability to afford medication [Not Recovered/Not Resolved]
  - Product supply issue [Not Recovered/Not Resolved]
